FAERS Safety Report 12540831 (Version 1)
Quarter: 2016Q3

REPORT INFORMATION
  Report Type: Spontaneous
  Country: US (occurrence: US)
  Receive Date: 20160708
  Receipt Date: 20160708
  Transmission Date: 20161109
  Serious: Yes (Other)
  Sender: FDA-Public Use
  Company Number: US-NOVOPROD-499506

PATIENT
  Age: 45 Year
  Sex: Female

DRUGS (1)
  1. NOVOLOG [Suspect]
     Active Substance: INSULIN ASPART
     Indication: PRODUCT USED FOR UNKNOWN INDICATION
     Dosage: UNKNOWN
     Route: 058

REACTIONS (9)
  - Glycosylated haemoglobin increased [Unknown]
  - Cerebrovascular accident [Unknown]
  - Myocardial infarction [Unknown]
  - Coronary artery occlusion [Unknown]
  - Weight decreased [Unknown]
  - Blood thyroid stimulating hormone abnormal [Unknown]
  - Malaise [Unknown]
  - Blood glucose increased [Unknown]
  - Binge eating [Unknown]

NARRATIVE: CASE EVENT DATE: 20150616
